FAERS Safety Report 4637515-7 (Version None)
Quarter: 2005Q2

REPORT INFORMATION
  Report Type: 
  Country: None (occurrence: None)
  Receive Date: 20050418
  Receipt Date: 20050401
  Transmission Date: 20051028
  Serious: Yes (Hospitalization)
  Sender: FDA-Public Use
  Company Number: US-AMGEN-US124499

PATIENT
  Sex: Female
  Weight: 68.1 kg

DRUGS (1)
  1. ENBREL [Suspect]
     Indication: PSORIATIC ARTHROPATHY
     Route: 058
     Dates: start: 20040501

REACTIONS (2)
  - MENINGITIS ASEPTIC [None]
  - SINUSITIS BACTERIAL [None]
